FAERS Safety Report 24643762 (Version 3)
Quarter: 2024Q4

REPORT INFORMATION
  Report Type: Spontaneous
  Country: US (occurrence: US)
  Receive Date: 20241120
  Receipt Date: 20241220
  Transmission Date: 20250114
  Serious: No
  Sender: BRISTOL-MYERS SQUIBB COMPANY
  Company Number: US-BRISTOL-MYERS SQUIBB COMPANY-2024-181193

PATIENT
  Age: 64 Year
  Sex: Female

DRUGS (1)
  1. REVLIMID [Suspect]
     Active Substance: LENALIDOMIDE
     Indication: Plasma cell myeloma
     Route: 048

REACTIONS (7)
  - Pruritus [Unknown]
  - Constipation [Unknown]
  - Swollen tongue [Unknown]
  - Rash [Unknown]
  - Paraesthesia [Unknown]
  - COVID-19 [Unknown]
  - Stomatitis [Unknown]

NARRATIVE: CASE EVENT DATE: 20240101
